FAERS Safety Report 5216736-9 (Version None)
Quarter: 2007Q1

REPORT INFORMATION
  Report Type: 
  Country: None (occurrence: None)
  Receive Date: 20070118
  Receipt Date: 20070115
  Transmission Date: 20070707
  Serious: Yes (Other)
  Sender: FDA-Public Use
  Company Number: UKP07000008

PATIENT
  Age: 81 Year
  Sex: Male
  Weight: 81 kg

DRUGS (16)
  1. ACTONEL [Suspect]
     Indication: BONE DISORDER
     Dosage: 35 MG, 1/WEEK, ORAL
     Route: 048
     Dates: start: 20060726, end: 20061214
  2. ADCAL D3 (COLECALCIFEROL, CALCIUM CARBONATE) [Concomitant]
  3. ASPIRIN [Concomitant]
  4. BETAMETHASONE VALERATE (BETAMETHASONE VALERATE) [Concomitant]
  5. CEFRADINE (CEFRADINE) [Concomitant]
  6. CHLORPHENAMINE (CHLORPHENAMINE) [Concomitant]
  7. COMBIVENT (SALBUTAMOL, IPRATROPIUM BROMIDE) [Concomitant]
  8. FUROSEMIDE [Concomitant]
  9. HYDROCORTISONE [Concomitant]
  10. LEVOTHYROXINE SODIUM [Concomitant]
  11. OILATUM (PARAFFIN, LIQUID) [Concomitant]
  12. OMEPRAZOLE [Concomitant]
  13. SALMETEROL XINAFOATE (SALMETEROL XINAFOATE) [Concomitant]
  14. SENNA (SENNA ALEXANDRINA) [Concomitant]
  15. SIMVASTATIN [Concomitant]
  16. SULFAMETHOXYPYRIDAZONE (SULFAMETHOXYPYRIDAZINE) [Concomitant]

REACTIONS (2)
  - EATING DISORDER [None]
  - PAIN [None]
